FAERS Safety Report 14094049 (Version 1)
Quarter: 2017Q4

REPORT INFORMATION
  Report Type: Report from Study
  Country: None (occurrence: AR)
  Receive Date: 20171016
  Receipt Date: 20171016
  Transmission Date: 20180321
  Serious: Yes (Hospitalization)
  Sender: FDA-Public Use
  Company Number: AR-ABBVIE-17K-007-2131335-00

PATIENT
  Age: 33 Year
  Sex: Male

DRUGS (1)
  1. HUMIRA [Suspect]
     Active Substance: ADALIMUMAB
     Indication: CROHN^S DISEASE
     Route: 058
     Dates: start: 20170906, end: 2017

REACTIONS (2)
  - Malaise [Unknown]
  - Cholelithiasis [Unknown]

NARRATIVE: CASE EVENT DATE: 201709
